FAERS Safety Report 22628640 (Version 1)
Quarter: 2023Q2

REPORT INFORMATION
  Report Type: Spontaneous
  Country: US (occurrence: None)
  Receive Date: 20230619
  Receipt Date: 20230619
  Transmission Date: 20230722
  Serious: Yes (Hospitalization)
  Sender: FDA-Public Use
  Company Number: None

PATIENT
  Age: 53 Year
  Sex: Male

DRUGS (2)
  1. HEMOFIL M [Suspect]
     Active Substance: ANTIHEMOPHILIC FACTOR HUMAN
     Indication: Factor VIII deficiency
     Dosage: 300 UNITS PRN IV?
     Route: 042
     Dates: start: 202301
  2. HEMOFIL M [Suspect]
     Active Substance: ANTIHEMOPHILIC FACTOR HUMAN
     Indication: Factor VIII deficiency
     Dosage: 1700 UNITS PRN IV
     Route: 042
     Dates: start: 202301

REACTIONS (4)
  - Fall [None]
  - Wrist fracture [None]
  - Ligament sprain [None]
  - Rib fracture [None]

NARRATIVE: CASE EVENT DATE: 20230609
